FAERS Safety Report 7608532-X (Version None)
Quarter: 2011Q3

REPORT INFORMATION
  Report Type: 
  Country: None (occurrence: None)
  Receive Date: 20110714
  Receipt Date: 20110701
  Transmission Date: 20111222
  Serious: Yes (Hospitalization)
  Sender: FDA-Public Use
  Company Number: PHHY2010JP88992

PATIENT
  Sex: Male

DRUGS (7)
  1. TASIGNA [Suspect]
     Dosage: 400 MG, UNK
     Route: 048
     Dates: start: 20100318
  2. AMARYL [Concomitant]
     Dosage: 01 MG, UNK
     Route: 048
     Dates: start: 20100401
  3. EBASTINE [Concomitant]
     Dosage: 10 MG, UNK
     Route: 048
     Dates: start: 20100318, end: 20100401
  4. NICARDIPINE HCL [Concomitant]
     Dosage: 40 MG, UNK
     Route: 048
     Dates: start: 20100121
  5. RIZE [Concomitant]
     Dosage: 15 MG, UNK
     Dates: start: 20100121, end: 20100318
  6. TASIGNA [Suspect]
     Indication: CHRONIC MYELOID LEUKAEMIA
     Dosage: 800 MG, UNK
     Route: 048
     Dates: start: 20100121, end: 20100218
  7. MAGMITT KENEI [Concomitant]
     Dosage: 03 DF, UNK
     Route: 048

REACTIONS (3)
  - PLATELET COUNT DECREASED [None]
  - BLOOD GLUCOSE INCREASED [None]
  - BONE MARROW FAILURE [None]
